FAERS Safety Report 10436852 (Version 2)
Quarter: 2014Q3

REPORT INFORMATION
  Report Type: Spontaneous
  Country: US (occurrence: US)
  Receive Date: 20140908
  Receipt Date: 20140908
  Transmission Date: 20150326
  Serious: No
  Sender: FDA-Public Use
  Company Number: US-BRISTOL-MYERS SQUIBB COMPANY-20287223

PATIENT
  Age: 70 Year
  Sex: Male

DRUGS (5)
  1. ATENOLOL. [Concomitant]
     Active Substance: ATENOLOL
  2. ABILIFY [Suspect]
     Active Substance: ARIPIPRAZOLE
  3. PRAVASTATIN SODIUM. [Concomitant]
     Active Substance: PRAVASTATIN SODIUM
  4. COUMADIN [Concomitant]
     Active Substance: WARFARIN SODIUM
  5. PROZAC [Concomitant]
     Active Substance: FLUOXETINE HYDROCHLORIDE

REACTIONS (6)
  - Chromaturia [Unknown]
  - Dysuria [Unknown]
  - Pyrexia [Unknown]
  - Chills [Unknown]
  - Somnolence [Unknown]
  - Tremor [Unknown]
